FAERS Safety Report 21123885 (Version 1)
Quarter: 2022Q3

REPORT INFORMATION
  Report Type: Spontaneous
  Country: US (occurrence: US)
  Receive Date: 20220725
  Receipt Date: 20220725
  Transmission Date: 20221027
  Serious: Yes (Other)
  Sender: FDA-Public Use
  Company Number: US-CELLTRION INC.-2022US011638

PATIENT

DRUGS (4)
  1. RITUXIMAB [Suspect]
     Active Substance: RITUXIMAB
     Indication: Follicular lymphoma
     Dosage: 375 MG/M2 ON DAYS 1, 8, 15, AND 22 OF CYCLE 1 AND DAY 1 OF CYCLES 3-6
     Route: 042
  2. RITUXIMAB [Suspect]
     Active Substance: RITUXIMAB
     Indication: Chronic lymphocytic leukaemia
  3. ZANDELISIB [Suspect]
     Active Substance: ZANDELISIB
     Indication: Follicular lymphoma
     Dosage: 60 MG WITH RITUXIMAB
     Route: 048
  4. ZANDELISIB [Suspect]
     Active Substance: ZANDELISIB
     Indication: Chronic lymphocytic leukaemia

REACTIONS (6)
  - Alanine aminotransferase increased [Unknown]
  - Colitis [Unknown]
  - Neutrophil count decreased [Unknown]
  - Diarrhoea [Unknown]
  - Pneumonia [Unknown]
  - Adverse event [Unknown]
